FAERS Safety Report 20763854 (Version 1)
Quarter: 2022Q2

REPORT INFORMATION
  Report Type: Spontaneous
  Country: US (occurrence: None)
  Receive Date: 20220428
  Receipt Date: 20220428
  Transmission Date: 20220720
  Serious: No
  Sender: FDA-Public Use
  Company Number: None

PATIENT
  Sex: Female
  Weight: 58.97 kg

DRUGS (2)
  1. ROSUVASTATIN [Suspect]
     Active Substance: ROSUVASTATIN
     Indication: Blood cholesterol increased
     Dosage: FREQUENCY : DAILY;?
  2. ROSUVASTATIN [Suspect]
     Active Substance: ROSUVASTATIN
     Indication: Aneurysm

REACTIONS (8)
  - Erythema [None]
  - Feeling hot [None]
  - Burning sensation [None]
  - Pruritus [None]
  - Dry skin [None]
  - Skin exfoliation [None]
  - Ophthalmoplegia [None]
  - Facial pain [None]
